FAERS Safety Report 7589978-5 (Version None)
Quarter: 2011Q3

REPORT INFORMATION
  Report Type: 
  Country: None (occurrence: None)
  Receive Date: 20110705
  Receipt Date: 20110627
  Transmission Date: 20111222
  Serious: Yes (Death, Hospitalization)
  Sender: FDA-Public Use
  Company Number: A0901423A

PATIENT
  Age: 74 Year
  Sex: Male

DRUGS (16)
  1. ZOCOR [Concomitant]
     Dosage: 40MG PER DAY
     Route: 048
  2. VENTOLIN HFA [Suspect]
     Dosage: 1PUFF TWICE PER DAY
     Route: 055
  3. ADVAIR DISKUS 100/50 [Suspect]
     Indication: CHRONIC OBSTRUCTIVE PULMONARY DISEASE
     Dosage: 1PUFF TWICE PER DAY
     Route: 055
     Dates: start: 20090130
  4. MEGACE [Concomitant]
     Dosage: 40MG PER DAY
     Route: 048
  5. PREDNISONE [Concomitant]
     Dosage: 10MG PER DAY
     Route: 048
  6. HUMALOG [Concomitant]
  7. FLOVENT [Concomitant]
     Dosage: 1PUFF TWICE PER DAY
  8. SINGULAIR [Concomitant]
     Dosage: 10MG PER DAY
     Route: 048
  9. FLUOXETINE HCL [Concomitant]
     Dosage: 10MG PER DAY
     Route: 048
  10. ALBUTEROL SULFATE AUTOHALER [Concomitant]
  11. LOTREL [Concomitant]
     Dosage: 1TAB PER DAY
  12. OXYGEN [Concomitant]
  13. FOSAMAX [Concomitant]
     Dosage: 70MG WEEKLY
     Route: 048
  14. LASIX [Concomitant]
     Dosage: 40MG PER DAY
  15. LYRICA [Concomitant]
  16. PERCOCET [Concomitant]

REACTIONS (8)
  - HEART RATE INCREASED [None]
  - ATRIAL FIBRILLATION [None]
  - PNEUMONIA PNEUMOCOCCAL [None]
  - HYPOTENSION [None]
  - ACUTE RESPIRATORY DISTRESS SYNDROME [None]
  - RESPIRATORY FAILURE [None]
  - DYSPNOEA [None]
  - SEPTIC SHOCK [None]
